FAERS Safety Report 9151556 (Version 1)
Quarter: 2013Q1

REPORT INFORMATION
  Report Type: Report from Study
  Country: US (occurrence: US)
  Receive Date: 20130308
  Receipt Date: 20130308
  Transmission Date: 20140127
  Serious: Yes (Hospitalization, Other)
  Sender: FDA-Public Use
  Company Number: US-ABBOTT-13P-163-1051006-00

PATIENT
  Age: 69 Year
  Sex: Female

DRUGS (14)
  1. HUMIRA [Suspect]
     Indication: RHEUMATOID ARTHRITIS
  2. AMLODIPINE [Concomitant]
     Indication: HYPERTENSION
     Dosage: 5MG DAILY
  3. DIOVAN [Concomitant]
     Indication: HYPERTENSION
     Dosage: 320-25 MG DAILY
  4. DEPONIDE [Concomitant]
     Indication: FLUID RETENTION
  5. POTASSIUM CHLORIDE [Concomitant]
     Indication: PRODUCT USED FOR UNKNOWN INDICATION
     Dosage: 10 MEQ X 2 DAILY= 20 MEQ DAILY
  6. PREDNISONE [Concomitant]
     Indication: PRODUCT USED FOR UNKNOWN INDICATION
     Dosage: 6MG ALTERNATING WITH 5 MG DAILY
  7. PROMETHAZINE [Concomitant]
     Indication: NAUSEA
  8. CALCIUM [Concomitant]
     Indication: PRODUCT USED FOR UNKNOWN INDICATION
     Dosage: 600 MG DAILY
  9. BIOTIN [Concomitant]
     Indication: SUPPLEMENTATION THERAPY
     Dosage: DAILY
  10. ALPRAZOLAM [Concomitant]
     Indication: ANXIETY
  11. TIZANIDINE [Concomitant]
     Indication: PAIN
     Dosage: 2 MG AT NIGHT
  12. ZOLPIDEM [Concomitant]
     Indication: INSOMNIA
     Dosage: 5 MG 1/2 TABLET AT BEDTIME
  13. KETOCONAZOLE [Concomitant]
     Indication: PRODUCT USED FOR UNKNOWN INDICATION
  14. MUPIROCIN [Concomitant]
     Indication: PRODUCT USED FOR UNKNOWN INDICATION

REACTIONS (14)
  - Lung disorder [Recovering/Resolving]
  - Arthralgia [Unknown]
  - Rheumatoid arthritis [Unknown]
  - Spinal fracture [Unknown]
  - Fall [Unknown]
  - Depression [Unknown]
  - Gastrooesophageal reflux disease [Unknown]
  - Dry skin [Unknown]
  - Pruritus [Unknown]
  - Cellulitis [Unknown]
  - Bone disorder [Unknown]
  - Onychoclasis [Unknown]
  - Infection [Recovered/Resolved]
  - Osteoporosis [Unknown]
